FAERS Safety Report 5265908-6 (Version None)
Quarter: 2007Q1

REPORT INFORMATION
  Report Type: 
  Country: None (occurrence: None)
  Receive Date: 20070315
  Receipt Date: 20070302
  Transmission Date: 20070707
  Serious: Yes (Hospitalization)
  Sender: FDA-Public Use
  Company Number: PHHO2005JP20062

PATIENT
  Age: 70 Year
  Sex: Male
  Weight: 75 kg

DRUGS (15)
  1. ACECOL [Concomitant]
     Indication: HYPERTENSION
     Dosage: 4 MG
     Route: 048
     Dates: start: 20010305, end: 20031020
  2. ADALAT [Concomitant]
     Indication: HYPERTENSION
     Dosage: 40 MG
     Route: 048
     Dates: start: 20010305, end: 20031117
  3. CARDENALIN [Concomitant]
     Indication: HYPERTENSION
     Dosage: 2 MG
     Route: 048
     Dates: start: 20010305
  4. AMARYL [Concomitant]
     Indication: DIABETES MELLITUS
     Dosage: 2.5 MG
     Route: 048
     Dates: start: 20030106, end: 20040818
  5. ALLOPURINOL [Concomitant]
     Indication: HYPERGLYCAEMIA
     Dosage: 100 MG
     Route: 048
     Dates: start: 20010305
  6. LIPITOR [Concomitant]
     Indication: HYPERCHOLESTEROLAEMIA
     Dosage: 10 MG
     Route: 048
     Dates: start: 20040301
  7. ARTIST [Concomitant]
     Indication: HYPERTENSION
     Dosage: 10 MG
     Route: 048
     Dates: start: 20031229
  8. PENFILL R [Concomitant]
     Dosage: 35 IU
     Route: 042
     Dates: start: 20040902
  9. TICLOPIDINE HCL [Concomitant]
     Indication: CEREBRAL INFARCTION
     Dosage: 100 MG
     Route: 048
     Dates: start: 20010305, end: 20031020
  10. ADALAT [Concomitant]
     Indication: HYPERTENSION
     Dosage: 40 MG
     Route: 048
     Dates: start: 20031117
  11. ASPIRIN [Concomitant]
     Indication: CEREBRAL INFARCTION
     Dosage: 100 MG
     Route: 048
     Dates: start: 20031117
  12. DIOVAN [Suspect]
     Indication: HYPERTENSION
     Dosage: 80 MG, QD
     Route: 048
     Dates: start: 20030920
  13. LUPRAC [Suspect]
     Indication: OEDEMA
     Dosage: 4 MG, QD
     Route: 048
     Dates: start: 20030920
  14. ACTOS [Suspect]
     Indication: HYPERGLYCAEMIA
     Dosage: 30 MG, QD
     Route: 048
     Dates: start: 20031020, end: 20040329
  15. WARFARIN SODIUM [Concomitant]
     Indication: ATRIAL FIBRILLATION
     Dosage: UNK, UNK
     Dates: start: 20050315

REACTIONS (4)
  - CONDITION AGGRAVATED [None]
  - DIABETES MELLITUS [None]
  - OEDEMA PERIPHERAL [None]
  - SYNCOPE [None]
